FAERS Safety Report 8209464-9 (Version None)
Quarter: 2012Q1

REPORT INFORMATION
  Report Type: 
  Country: None (occurrence: None)
  Receive Date: 20120314
  Receipt Date: 20120228
  Transmission Date: 20120608
  Serious: Yes (Other)
  Sender: FDA-Public Use
  Company Number: CHPA2012CA004150

PATIENT
  Age: 75 Year
  Sex: Male

DRUGS (1)
  1. ALUMINUM HYDROXIDE AND MAGNESIUM TRISILICATE [Suspect]
     Indication: FLATULENCE
     Dosage: 1 TSP, UNK
     Route: 048
     Dates: start: 20000101

REACTIONS (5)
  - CHOLELITHIASIS [None]
  - DYSPEPSIA [None]
  - GASTROINTESTINAL DISORDER [None]
  - UNDERDOSE [None]
  - MUSCLE SPASMS [None]
